FAERS Safety Report 6608640-6 (Version None)
Quarter: 2010Q1

REPORT INFORMATION
  Report Type: 
  Country: None (occurrence: None)
  Receive Date: 20100226
  Receipt Date: 20100226
  Transmission Date: 20100710
  Serious: No
  Sender: FDA-Public Use
  Company Number: None

PATIENT
  Age: 67 Year
  Sex: Male

DRUGS (4)
  1. NAPROXEN [Suspect]
     Dosage: 500MG BID PO
     Route: 048
  2. LAC-HYDRIN [Concomitant]
  3. MAALOX [Concomitant]
  4. DEPAKOTE [Concomitant]

REACTIONS (3)
  - DRUG HYPERSENSITIVITY [None]
  - DRY SKIN [None]
  - PRURITUS [None]
